FAERS Safety Report 5662613-9 (Version None)
Quarter: 2008Q1

REPORT INFORMATION
  Report Type: 
  Country: None (occurrence: None)
  Receive Date: 20080313
  Receipt Date: 20080312
  Transmission Date: 20080703
  Serious: Yes (Disabling)
  Sender: FDA-Public Use
  Company Number: US-BRISTOL-MYERS SQUIBB COMPANY-14064406

PATIENT
  Age: 27 Year
  Sex: Female
  Weight: 52 kg

DRUGS (3)
  1. SPRYCEL [Suspect]
     Indication: CHRONIC MYELOID LEUKAEMIA
     Dosage: MEDICATION WAS TAKEN SPORADICALLY
     Route: 048
     Dates: start: 20070501
  2. LASIX [Suspect]
     Route: 048
  3. POTASSIUM CHLORIDE [Suspect]
     Route: 048

REACTIONS (2)
  - MIGRAINE [None]
  - TEMPOROMANDIBULAR JOINT SYNDROME [None]
